FAERS Safety Report 16953088 (Version 2)
Quarter: 2019Q4

REPORT INFORMATION
  Report Type: Spontaneous
  Country: US (occurrence: US)
  Receive Date: 20191023
  Receipt Date: 20191209
  Transmission Date: 20200122
  Serious: No
  Sender: FDA-Public Use
  Company Number: US-CELGENEUS-USA-20191007089

PATIENT
  Age: 51 Year
  Sex: Male
  Weight: 84 kg

DRUGS (4)
  1. TACLONEX [Concomitant]
     Active Substance: BETAMETHASONE DIPROPIONATE\CALCIPOTRIENE\CALCIPOTRIENE HYDRATE
     Indication: PSORIASIS
     Dosage: 0.005-0.064%
     Route: 061
     Dates: start: 201707
  2. ELIDEL [Concomitant]
     Active Substance: PIMECROLIMUS
     Indication: PSORIASIS
     Route: 061
     Dates: start: 201707
  3. APREMILAST [Suspect]
     Active Substance: APREMILAST
     Indication: PSORIASIS
     Dosage: 60 MILLIGRAM (STARTER PACK)
     Route: 048
     Dates: start: 201905
  4. APREMILAST [Suspect]
     Active Substance: APREMILAST
     Dosage: 60 MILLIGRAM
     Route: 048
     Dates: start: 201908

REACTIONS (2)
  - Muscle atrophy [Not Recovered/Not Resolved]
  - Weight decreased [Not Recovered/Not Resolved]

NARRATIVE: CASE EVENT DATE: 201909
